FAERS Safety Report 19635261 (Version 1)
Quarter: 2021Q3

REPORT INFORMATION
  Report Type: Spontaneous
  Country: US (occurrence: US)
  Receive Date: 20210730
  Receipt Date: 20210730
  Transmission Date: 20211014
  Serious: Yes (Hospitalization)
  Sender: FDA-Public Use
  Company Number: None

PATIENT
  Age: 40 Year
  Sex: Male
  Weight: 70 kg

DRUGS (4)
  1. CISPLATIN. [Suspect]
     Active Substance: CISPLATIN
     Dates: end: 20210716
  2. IFOSFAMIDE. [Suspect]
     Active Substance: IFOSFAMIDE
     Dates: end: 20210720
  3. TAXOL [Suspect]
     Active Substance: PACLITAXEL
     Dates: end: 20210716
  4. G?CSF (FILGRASTIM, AMGEN) [Suspect]
     Active Substance: FILGRASTIM
     Dates: end: 20210724

REACTIONS (5)
  - Platelet count decreased [None]
  - White blood cell count decreased [None]
  - Blood potassium decreased [None]
  - Blood creatinine increased [None]
  - Blood sodium decreased [None]

NARRATIVE: CASE EVENT DATE: 20210724
